FAERS Safety Report 7263745-4 (Version None)
Quarter: 2011Q1

REPORT INFORMATION
  Report Type: 
  Country: None (occurrence: None)
  Receive Date: 20110130
  Receipt Date: 20101215
  Transmission Date: 20110831
  Serious: No
  Sender: FDA-Public Use
  Company Number: US-ABBOTT-10P-163-0692257-00

PATIENT
  Sex: Female
  Weight: 78.542 kg

DRUGS (7)
  1. HUMIRA [Suspect]
     Indication: RHEUMATOID ARTHRITIS
     Route: 058
     Dates: start: 20090801, end: 20100301
  2. HUMIRA [Suspect]
     Route: 058
     Dates: start: 20101101
  3. CELEBREX [Concomitant]
     Indication: BACK PAIN
     Dates: end: 20101201
  4. CELEBREX [Concomitant]
     Indication: RHEUMATOID ARTHRITIS
  5. FLONASE [Concomitant]
     Indication: ASTHMA
  6. FINECA [Concomitant]
     Indication: PRODUCT USED FOR UNKNOWN INDICATION
     Route: 061
  7. QVAR 40 [Concomitant]
     Indication: ASTHMA

REACTIONS (6)
  - ARTHRALGIA [None]
  - NASOPHARYNGITIS [None]
  - ASTHENIA [None]
  - NASAL CONGESTION [None]
  - RHINORRHOEA [None]
  - RHEUMATOID ARTHRITIS [None]
